FAERS Safety Report 9716144 (Version 1)
Quarter: 2013Q4

REPORT INFORMATION
  Report Type: Spontaneous
  Country: US (occurrence: US)
  Receive Date: 20131127
  Receipt Date: 20131127
  Transmission Date: 20140711
  Serious: Yes (Hospitalization)
  Sender: FDA-Public Use
  Company Number: US-MALLINCKRODT-T201304946

PATIENT
  Age: 42 Year
  Sex: Male

DRUGS (2)
  1. FENTANYL TRANSDERMAL SYSTEM [Suspect]
     Indication: PRODUCT USED FOR UNKNOWN INDICATION
     Dosage: APPROX. 2
     Route: 048
  2. GABAPENTIN [Suspect]
     Indication: PRODUCT USED FOR UNKNOWN INDICATION
     Dosage: APPROX. 90
     Route: 048

REACTIONS (8)
  - Drug abuse [Unknown]
  - Irritability [Unknown]
  - Mydriasis [Unknown]
  - Agitation [Unknown]
  - Diarrhoea [Unknown]
  - Tachycardia [Unknown]
  - Tremor [Unknown]
  - Vomiting [Unknown]
